FAERS Safety Report 5831865-4 (Version None)
Quarter: 2008Q3

REPORT INFORMATION
  Report Type: 
  Country: None (occurrence: None)
  Receive Date: 20080729
  Receipt Date: 20080715
  Transmission Date: 20090109
  Serious: Yes (Disabling)
  Sender: FDA-Public Use
  Company Number: ENTC2008-0214

PATIENT
  Age: 68 Year
  Sex: Female

DRUGS (5)
  1. STALEVO 100 [Suspect]
     Indication: PARKINSON'S DISEASE
     Dosage: 50/12, 5/200 4X1
     Route: 048
     Dates: start: 20060101
  2. MADOPAR 25 [Concomitant]
  3. CARBIDOPA + LEVODOPA [Concomitant]
  4. SELEGILIN [Concomitant]
  5. SIFROL [Concomitant]

REACTIONS (2)
  - PERIPHERAL VASCULAR DISORDER [None]
  - TOE AMPUTATION [None]
